FAERS Safety Report 10013115 (Version 1)
Quarter: 2014Q1

REPORT INFORMATION
  Report Type: Spontaneous
  Country: US (occurrence: US)
  Receive Date: 20140314
  Receipt Date: 20140314
  Transmission Date: 20141002
  Serious: Yes (Hospitalization)
  Sender: FDA-Public Use
  Company Number: US-ASTRAZENECA-2014SE16882

PATIENT
  Age: 82 Year
  Sex: Female
  Weight: 93.9 kg

DRUGS (28)
  1. SYMBICORT [Suspect]
     Indication: CHRONIC OBSTRUCTIVE PULMONARY DISEASE
     Dosage: 160/4.5, 2 PUFFS TWICE A DAY
     Route: 055
  2. MORPHINE [Suspect]
     Route: 065
  3. OMEPRAZOLE [Suspect]
     Indication: BLOOD PRESSURE ABNORMAL
     Route: 048
     Dates: start: 2010
  4. COUMADIN [Concomitant]
     Dosage: 2.5 MG 5 DAYS A WEEK DAILY
     Route: 048
     Dates: start: 1979
  5. COUMADIN [Concomitant]
     Dosage: 5 MG 2 DAYS A WEEK DAILY
     Route: 048
     Dates: start: 1979
  6. ALBUTEROL INHALER [Concomitant]
     Indication: CHRONIC OBSTRUCTIVE PULMONARY DISEASE
     Dosage: 3-4 TIMES DAILY
     Route: 055
     Dates: start: 2008
  7. SPIRIVA [Concomitant]
     Indication: CHRONIC OBSTRUCTIVE PULMONARY DISEASE
     Dosage: UNKNOWN, DAILY
     Route: 055
     Dates: start: 2009
  8. POTASSIUM [Concomitant]
     Route: 048
  9. LASIX [Concomitant]
     Indication: FLUID RETENTION
     Route: 048
  10. LASIX [Concomitant]
     Indication: CARDIAC FAILURE
     Route: 048
  11. VITAMIN B12 [Concomitant]
     Dosage: UNKNOWN, MONTHLY
     Dates: start: 2012
  12. MAG 64 [Concomitant]
     Indication: MINERAL SUPPLEMENTATION
     Dosage: DAILY
     Route: 048
  13. VITAMIN D [Concomitant]
     Route: 048
  14. LEVOTHYROXINE [Concomitant]
     Indication: HYPOTHYROIDISM
     Route: 048
     Dates: start: 1999
  15. LINVESF [Concomitant]
     Indication: GASTRIC DISORDER
     Route: 048
     Dates: start: 2012
  16. DULCOLAX [Concomitant]
     Indication: FAECES HARD
     Route: 048
     Dates: start: 2010
  17. ACETAMINOPHEN [Concomitant]
     Indication: ARTHRALGIA
     Route: 048
     Dates: start: 2012
  18. DARVOCET [Concomitant]
     Indication: ARTHRALGIA
     Dates: start: 2012
  19. METOLAZONE [Concomitant]
     Indication: DIURETIC THERAPY
     Route: 048
     Dates: start: 2011
  20. HYDROXYZINE PAM [Concomitant]
     Indication: PRURITUS
     Route: 048
     Dates: start: 2012
  21. HYDROXYZINE PAM [Concomitant]
     Indication: ANXIETY
     Route: 048
     Dates: start: 2012
  22. LOSARTAN [Concomitant]
     Indication: BLOOD PRESSURE ABNORMAL
     Route: 048
     Dates: start: 2013
  23. RISPERIDONE [Concomitant]
     Indication: MENTAL DISORDER
     Route: 048
  24. RISPERIDONE [Concomitant]
     Indication: MENTAL DISORDER
     Route: 048
  25. FLECAINIDE ACETATE [Concomitant]
     Indication: ATRIAL FIBRILLATION
     Route: 048
  26. TRAZODONE [Concomitant]
     Indication: SLEEP DISORDER
     Route: 048
  27. ATORVASTATIN [Concomitant]
     Indication: ATRIAL FIBRILLATION
     Route: 048
  28. ATORVASTATIN [Concomitant]
     Indication: BLOOD PRESSURE ABNORMAL
     Route: 048

REACTIONS (6)
  - Fall [Unknown]
  - Hip fracture [Unknown]
  - Balance disorder [Not Recovered/Not Resolved]
  - Drug hypersensitivity [Unknown]
  - Off label use [Not Recovered/Not Resolved]
  - Intentional drug misuse [Unknown]
